FAERS Safety Report 12535682 (Version 1)
Quarter: 2016Q3

REPORT INFORMATION
  Report Type: Spontaneous
  Country: RU (occurrence: RU)
  Receive Date: 20160707
  Receipt Date: 20160707
  Transmission Date: 20161109
  Serious: Yes (Other)
  Sender: FDA-Public Use
  Company Number: RU-SUN PHARMACEUTICAL INDUSTRIES LTD-2016RR-119789

PATIENT
  Age: 38 Year
  Sex: Female

DRUGS (4)
  1. VALPROIC ACID. [Suspect]
     Active Substance: VALPROIC ACID
     Indication: EPILEPSY
     Dosage: 3000 MG, DAILY
     Route: 042
  2. CORTEXIN [Suspect]
     Active Substance: SUS SCROFA CEREBRAL CORTEX
     Indication: EPILEPSY
     Dosage: 20 MG, DAILY
     Route: 042
  3. LEVETIRACETAM. [Suspect]
     Active Substance: LEVETIRACETAM
     Indication: EPILEPSY
     Dosage: 3000 MG, DAILY
     Route: 042
  4. PROPOFOL. [Suspect]
     Active Substance: PROPOFOL
     Indication: EPILEPSY
     Dosage: 500 MG, DAILY
     Route: 042

REACTIONS (1)
  - Drug ineffective [Recovered/Resolved]
